FAERS Safety Report 8426073-7 (Version None)
Quarter: 2012Q2

REPORT INFORMATION
  Report Type: 
  Country: None (occurrence: None)
  Receive Date: 20120611
  Receipt Date: 20120530
  Transmission Date: 20120825
  Serious: Yes (Other)
  Sender: FDA-Public Use
  Company Number: ES-ELI_LILLY_AND_COMPANY-ES201206000570

PATIENT

DRUGS (1)
  1. ZYPREXA [Suspect]
     Dosage: 10 MG, UNK
     Route: 064

REACTIONS (3)
  - DEVELOPMENTAL DELAY [None]
  - EXPOSURE VIA FATHER [None]
  - FOETAL GROWTH RESTRICTION [None]
